FAERS Safety Report 9531114 (Version 1)
Quarter: 2013Q2

REPORT INFORMATION
  Report Type: Spontaneous
  Country: US (occurrence: None)
  Receive Date: 20130402
  Receipt Date: 20130402
  Transmission Date: 20140414
  Serious: No
  Sender: FDA-Public Use
  Company Number: 2012-003923

PATIENT
  Age: 27 Year
  Sex: Female
  Weight: 63.9 kg

DRUGS (1)
  1. LOESTRIN 24 FE [Suspect]
     Route: 048
     Dates: start: 201201, end: 20120917

REACTIONS (2)
  - Deep vein thrombosis [None]
  - Pain [None]
